FAERS Safety Report 17206382 (Version 3)
Quarter: 2020Q2

REPORT INFORMATION
  Report Type: Spontaneous
  Country: US (occurrence: US)
  Receive Date: 20191227
  Receipt Date: 20200625
  Transmission Date: 20200713
  Serious: Yes (Other)
  Sender: FDA-Public Use
  Company Number: US-SA-2019SA358064

PATIENT

DRUGS (11)
  1. CAFFEINE. [Concomitant]
     Active Substance: CAFFEINE
     Dosage: 1 DF, 3X WEEK
     Route: 048
     Dates: start: 20191207, end: 20191212
  2. FASENRA [Concomitant]
     Active Substance: BENRALIZUMAB
     Indication: ASTHMA
     Dosage: UNK
     Dates: start: 20190115, end: 20191001
  3. DUPIXENT [Suspect]
     Active Substance: DUPILUMAB
     Dosage: UNK
     Route: 058
     Dates: start: 2019
  4. DUPIXENT [Suspect]
     Active Substance: DUPILUMAB
     Indication: ASTHMA
     Dosage: 600 MG
     Route: 058
     Dates: start: 20191115
  5. SYMBICORT [Concomitant]
     Active Substance: BUDESONIDE\FORMOTEROL FUMARATE DIHYDRATE
     Indication: ASTHMA
     Dosage: 2 PUFFS, BID, 160/4.5
     Route: 055
     Dates: start: 20191025
  6. VITAMIN D NOS [Concomitant]
     Active Substance: VITAMIN D NOS
     Indication: VITAMIN D DEFICIENCY
     Dosage: 1 DF, QW
     Route: 048
     Dates: start: 20191111, end: 20191212
  7. PROFEX [IBUPROFEN] [Concomitant]
     Indication: ASTHMA
     Dosage: 2 DF, PRN (2 PUFFS)
     Route: 055
     Dates: start: 201903
  8. ALBUTEROL [SALBUTAMOL SULFATE] [Concomitant]
     Active Substance: ALBUTEROL SULFATE
     Indication: ASTHMA
     Dosage: 2 DF, 3.5 DAY
     Route: 045
     Dates: start: 20190115, end: 20191130
  9. UNITHROID [Concomitant]
     Active Substance: LEVOTHYROXINE SODIUM
     Indication: THYROID CANCER
     Dosage: 175 UG, QD
     Route: 048
     Dates: start: 20191111, end: 20191212
  10. CAFFEINE. [Concomitant]
     Active Substance: CAFFEINE
     Dosage: 1 DF, QD
     Route: 048
     Dates: start: 20191111, end: 20191206
  11. FLU VACCINE VII [Concomitant]
     Active Substance: INFLUENZA VIRUS VACCINE
     Dosage: 1 DF, 1X
     Dates: start: 20191001, end: 20191010

REACTIONS (2)
  - Abortion spontaneous [Unknown]
  - Exposure during pregnancy [Unknown]

NARRATIVE: CASE EVENT DATE: 20191120
